FAERS Safety Report 8585503-0 (Version None)
Quarter: 2012Q3

REPORT INFORMATION
  Report Type: 
  Country: None (occurrence: None)
  Receive Date: 20120810
  Receipt Date: 20120731
  Transmission Date: 20120928
  Serious: Yes (Other)
  Sender: FDA-Public Use
  Company Number: US-BAYER-2012-045815

PATIENT
  Age: 19 Year
  Sex: Female

DRUGS (14)
  1. YAZ [Suspect]
  2. METFORMIN HYDROCHLORIDE [Concomitant]
     Dosage: 1000 MG, BID
     Dates: start: 20100428
  3. YASMIN [Suspect]
  4. FLUCONAZOLE [Concomitant]
     Dosage: 200 MG, UNK
     Dates: start: 20091229, end: 20100301
  5. FLUDROCORTISONE ACETATE [Concomitant]
     Dosage: 0.1 MG, UNK
     Dates: start: 20100429
  6. MAGIC SWIZZLE [Concomitant]
     Dosage: UNK
     Dates: start: 20100510
  7. CELEXA [Concomitant]
     Dosage: 20 MG, NIGHTLY, UNK
     Dates: start: 20100428
  8. FLORINEF [Concomitant]
     Dosage: 0.1 MG,DAILY, UNK
     Dates: start: 20100428
  9. DEXAMETHASONE [Concomitant]
     Dosage: 0.5MG/5ML
     Dates: start: 20100515
  10. HYDROCODONE BITARTRATE AND ACETAMINOPHEN [Concomitant]
     Dosage: 7.5/500 UNK
     Dates: start: 20100429
  11. MULTI-VITAMIN [Concomitant]
     Dosage: DAILY
     Dates: start: 20100428
  12. LORTAB [Concomitant]
     Dosage: 7.5 ONE TO 2 QID PRN
     Dates: start: 20100428
  13. PHENERGAN HCL [Concomitant]
     Dosage: 12.5/. 1
     Dates: start: 20100429
  14. CHLORHEXIDINE GLUCONATE [Concomitant]
     Dosage: 0.12 %, UNK
     Dates: start: 20100515

REACTIONS (9)
  - EMOTIONAL DISTRESS [None]
  - INJURY [None]
  - QUALITY OF LIFE DECREASED [None]
  - ANXIETY [None]
  - DEEP VEIN THROMBOSIS [None]
  - FEAR [None]
  - PULMONARY EMBOLISM [None]
  - PAIN [None]
  - ANHEDONIA [None]
